FAERS Safety Report 6648186-2 (Version None)
Quarter: 2010Q1

REPORT INFORMATION
  Report Type: 
  Country: None (occurrence: None)
  Receive Date: 20100324
  Receipt Date: 20100318
  Transmission Date: 20100710
  Serious: Yes (Other)
  Sender: FDA-Public Use
  Company Number: CHPA2010US05401

PATIENT
  Age: 80 Year
  Sex: Female

DRUGS (1)
  1. MAALOX UNKNOWN (NCH) [Suspect]
     Dosage: UNK, UNK
     Route: 048

REACTIONS (1)
  - DIABETES MELLITUS [None]
